FAERS Safety Report 7006370-2 (Version None)
Quarter: 2010Q3

REPORT INFORMATION
  Report Type: 
  Country: None (occurrence: None)
  Receive Date: 20100909
  Receipt Date: 20100504
  Transmission Date: 20110219
  Serious: Yes (Other)
  Sender: FDA-Public Use
  Company Number: 2010SP013554

PATIENT
  Age: 51 Year
  Sex: Female

DRUGS (7)
  1. TEMODAR [Suspect]
     Indication: GLIOBLASTOMA
     Dosage: ;PO
     Route: 048
     Dates: start: 20080422, end: 20080602
  2. REMERON [Concomitant]
  3. VITAMIN B [Concomitant]
  4. REGLAN [Concomitant]
  5. LAMICTAL [Concomitant]
  6. NITROFURANTOIN [Concomitant]
  7. MACROCRYSTAL [Concomitant]

REACTIONS (4)
  - BONE MARROW FAILURE [None]
  - DRUG TOXICITY [None]
  - PANCYTOPENIA [None]
  - VITAMIN B COMPLEX DEFICIENCY [None]
